FAERS Safety Report 4694090-9 (Version None)
Quarter: 2005Q2

REPORT INFORMATION
  Report Type: 
  Country: None (occurrence: None)
  Receive Date: 20050617
  Receipt Date: 20050607
  Transmission Date: 20051028
  Serious: Yes (Other)
  Sender: FDA-Public Use
  Company Number: GXKR2005US01201

PATIENT
  Age: 73 Year
  Sex: Female

DRUGS (5)
  1. VERAPAMIL [Suspect]
     Indication: HYPERTENSION
     Dosage: 240 MG, BID,
  2. METOPROLOL SUCCINATE [Suspect]
     Indication: HYPERTENSION
     Dosage: 100 MG, BID,
  3. METOPROLOL (NGX) [Suspect]
     Dosage: 50 MG, BID,
  4. FUROSEMIDE [Suspect]
  5. MOEXIPRIL (MOEXIPRIL) [Suspect]
     Dosage: 15 MG, BID,

REACTIONS (7)
  - ASTHENIA [None]
  - BLOOD PRESSURE DECREASED [None]
  - DIZZINESS [None]
  - DRUG INTERACTION INHIBITION [None]
  - NODAL RHYTHM [None]
  - SINUS BRADYCARDIA [None]
  - SYNCOPE [None]
